FAERS Safety Report 7586355-8 (Version None)
Quarter: 2011Q2

REPORT INFORMATION
  Report Type: 
  Country: None (occurrence: None)
  Receive Date: 20110624
  Receipt Date: 20110608
  Transmission Date: 20111010
  Serious: Yes (Hospitalization)
  Sender: FDA-Public Use
  Company Number: DSA_46881_2011

PATIENT
  Age: 77 Year
  Sex: Female

DRUGS (4)
  1. ENALAPRIL MALEATE [Suspect]
     Indication: ESSENTIAL HYPERTENSION
     Dosage: (1/2 DF ORAL), (DF ORAL)
     Route: 048
  2. LEVOTHYROXINE SODIUM [Concomitant]
  3. PARAFLEX [Suspect]
     Indication: BACK PAIN
     Dosage: (DF ORAL)
     Route: 048
     Dates: start: 20110201, end: 20110201
  4. IBUPROFEN [Suspect]
     Indication: BACK PAIN
     Dosage: (DF ORAL)
     Route: 048
     Dates: start: 20110201, end: 20110201

REACTIONS (7)
  - NASOPHARYNGITIS [None]
  - DIARRHOEA [None]
  - HYPERKALAEMIA [None]
  - BLOOD CREATININE INCREASED [None]
  - RENAL IMPAIRMENT [None]
  - ABDOMINAL PAIN UPPER [None]
  - FATIGUE [None]
